FAERS Safety Report 22132713 (Version 1)
Quarter: 2023Q1

REPORT INFORMATION
  Report Type: Spontaneous
  Country: CN (occurrence: CN)
  Receive Date: 20230323
  Receipt Date: 20230323
  Transmission Date: 20230418
  Serious: Yes (Other)
  Sender: FDA-Public Use
  Company Number: CN-009507513-2303CHN005989

PATIENT
  Age: 57 Year
  Sex: Male

DRUGS (1)
  1. CILASTATIN SODIUM\IMIPENEM [Suspect]
     Active Substance: CILASTATIN SODIUM\IMIPENEM
     Indication: Anti-infective therapy
     Dosage: 1000 MILLIGRAM, Q8H
     Route: 041
     Dates: start: 20230227, end: 20230303

REACTIONS (3)
  - Delirium [Recovered/Resolved]
  - Restlessness [Unknown]
  - Disorganised speech [Unknown]

NARRATIVE: CASE EVENT DATE: 20230302
